FAERS Safety Report 8798956 (Version 1)
Quarter: 2012Q4

REPORT INFORMATION
  Report Type: Spontaneous
  Country: US (occurrence: None)
  Receive Date: 20120918
  Receipt Date: 20120918
  Transmission Date: 20130627
  Serious: Yes (Other)
  Sender: FDA-Public Use
  Company Number: None

PATIENT
  Age: 68 Year
  Sex: Female
  Weight: 61.24 kg

DRUGS (1)
  1. PROLIA [Suspect]
     Indication: BONE DENSITY ABNORMAL
     Dosage: injection one

REACTIONS (4)
  - Insomnia [None]
  - Paraesthesia [None]
  - Asthenia [None]
  - Immune system disorder [None]
